FAERS Safety Report 10746591 (Version 2)
Quarter: 2015Q1

REPORT INFORMATION
  Report Type: Spontaneous
  Country: JP (occurrence: JP)
  Receive Date: 20150128
  Receipt Date: 20150212
  Transmission Date: 20150721
  Serious: Yes (Hospitalization, Other)
  Sender: FDA-Public Use
  Company Number: JP-GLAXOSMITHKLINE-JP2015JPN007198

PATIENT
  Age: 89 Year
  Sex: Female

DRUGS (8)
  1. BAYASPIRIN [Concomitant]
     Active Substance: ASPIRIN
     Dosage: UNK
  2. VALTREX [Suspect]
     Active Substance: VALACYCLOVIR HYDROCHLORIDE
     Indication: HERPES ZOSTER
     Dosage: 1000 MG, TID
     Route: 048
     Dates: start: 20150116, end: 20150118
  3. AMLODIN [Concomitant]
     Active Substance: AMLODIPINE BESYLATE
     Dosage: UNK
  4. MEMARY [Concomitant]
     Active Substance: MEMANTINE HYDROCHLORIDE
     Dosage: UNK
  5. LOXIPAIN [Concomitant]
     Active Substance: LOXOPROFEN SODIUM
     Indication: HERPES ZOSTER
     Dosage: 100 MG, BID
     Dates: start: 20150116, end: 20150118
  6. ARICEPT [Concomitant]
     Active Substance: DONEPEZIL HYDROCHLORIDE
     Dosage: UNK
  7. TEGRETOL [Concomitant]
     Active Substance: CARBAMAZEPINE
     Indication: HERPES ZOSTER
     Dosage: 60 MG, TID
     Dates: start: 20150116, end: 20150118
  8. SEROQUEL [Concomitant]
     Active Substance: QUETIAPINE FUMARATE
     Dosage: UNK

REACTIONS (4)
  - Toxic encephalopathy [Not Recovered/Not Resolved]
  - Acute kidney injury [Recovered/Resolved]
  - Decreased appetite [Unknown]
  - Altered state of consciousness [Unknown]

NARRATIVE: CASE EVENT DATE: 20150117
